FAERS Safety Report 5713073-0 (Version None)
Quarter: 2008Q2

REPORT INFORMATION
  Report Type: 
  Country: None (occurrence: None)
  Receive Date: 20080418
  Receipt Date: 20080407
  Transmission Date: 20081010
  Serious: Yes (Hospitalization)
  Sender: FDA-Public Use
  Company Number: 2008-01210

PATIENT
  Age: 63 Year
  Sex: Female
  Weight: 73 kg

DRUGS (2)
  1. VELCADE [Suspect]
     Indication: MULTIPLE MYELOMA
     Dosage: 5 MG
     Dates: start: 20060710, end: 20060928
  2. DEXAMETHASONE TAB [Suspect]
     Indication: MULTIPLE MYELOMA
     Dosage: 40 MG,
     Dates: start: 20060710, end: 20060721

REACTIONS (3)
  - AUTONOMIC NEUROPATHY [None]
  - GENERAL PHYSICAL HEALTH DETERIORATION [None]
  - NEUROPATHY PERIPHERAL [None]
